FAERS Safety Report 12180158 (Version 1)
Quarter: 2016Q1

REPORT INFORMATION
  Report Type: Spontaneous
  Country: US (occurrence: US)
  Receive Date: 20160315
  Receipt Date: 20160315
  Transmission Date: 20160526
  Serious: Yes (Other)
  Sender: FDA-Public Use
  Company Number: US-BAYER-2016-048122

PATIENT
  Age: 79 Year
  Sex: Male

DRUGS (1)
  1. FINACEA [Suspect]
     Active Substance: AZELAIC ACID
     Indication: ROSACEA
     Dosage: UNK, QD
     Route: 061
     Dates: start: 201603, end: 20160307

REACTIONS (3)
  - Application site reaction [None]
  - Application site pruritus [None]
  - Application site pain [None]

NARRATIVE: CASE EVENT DATE: 201603
